FAERS Safety Report 9782227 (Version 1)
Quarter: 2013Q4

REPORT INFORMATION
  Report Type: Report from Study
  Country: US (occurrence: US)
  Receive Date: 20131226
  Receipt Date: 20131226
  Transmission Date: 20140711
  Serious: Yes (Life-Threatening, Other)
  Sender: FDA-Public Use
  Company Number: US-ROCHE-1320921

PATIENT
  Sex: Female
  Weight: 56.75 kg

DRUGS (5)
  1. HERCEPTIN [Suspect]
     Indication: BREAST CANCER
     Dosage: FOR 12 WEEKS
     Route: 042
     Dates: start: 20130109, end: 20130327
  2. HERCEPTIN [Suspect]
     Route: 042
     Dates: start: 201304
  3. LETROZOLE [Concomitant]
     Indication: OSTEOPOROSIS
     Route: 048
  4. ALENDRONATE SODIUM [Concomitant]
     Indication: OSTEOPOROSIS
     Route: 048
  5. PROZAC [Concomitant]
     Indication: DEPRESSION
     Route: 065

REACTIONS (7)
  - Presyncope [Unknown]
  - Echocardiogram abnormal [Not Recovered/Not Resolved]
  - Dizziness [Not Recovered/Not Resolved]
  - Pain [Not Recovered/Not Resolved]
  - Depression [Recovered/Resolved]
  - Blood cholesterol increased [Unknown]
  - Weight decreased [Unknown]
